FAERS Safety Report 15103297 (Version 1)
Quarter: 2018Q3

REPORT INFORMATION
  Report Type: Spontaneous
  Country: US (occurrence: US)
  Receive Date: 20180703
  Receipt Date: 20180703
  Transmission Date: 20181010
  Serious: No
  Sender: FDA-Public Use
  Company Number: US-PFIZER INC-2018268411

PATIENT
  Age: 60 Year
  Sex: Male

DRUGS (1)
  1. XELJANZ XR [Suspect]
     Active Substance: TOFACITINIB CITRATE
     Dosage: 11 MG, UNK
     Dates: start: 20180702, end: 20180702

REACTIONS (2)
  - Nausea [Unknown]
  - Headache [Unknown]

NARRATIVE: CASE EVENT DATE: 20180702
